FAERS Safety Report 5902648-1 (Version None)
Quarter: 2008Q3

REPORT INFORMATION
  Report Type: 
  Country: None (occurrence: None)
  Receive Date: 20080926
  Receipt Date: 20080919
  Transmission Date: 20090109
  Serious: Yes (Other)
  Sender: FDA-Public Use
  Company Number: CHPA2008CA15838

PATIENT
  Age: 32 Year
  Sex: Male

DRUGS (1)
  1. HABITROL [Suspect]
     Indication: SMOKING CESSATION THERAPY
     Dosage: 21 MG, TRANSDERMAL; 21 MG, QD, TRANSDERMAL; 14 MG, QD, TRANSDERMAL
     Route: 062

REACTIONS (2)
  - CEREBROVASCULAR ACCIDENT [None]
  - NICOTINE DEPENDENCE [None]
